FAERS Safety Report 11092709 (Version 2)
Quarter: 2015Q2

REPORT INFORMATION
  Report Type: Spontaneous
  Country: JP (occurrence: JP)
  Receive Date: 20150506
  Receipt Date: 20150630
  Transmission Date: 20150821
  Serious: Yes (Hospitalization)
  Sender: FDA-Public Use
  Company Number: JP-JNJFOC-20150420842

PATIENT
  Age: 63 Year
  Sex: Female
  Weight: 54 kg

DRUGS (12)
  1. HOCHU-EKKI-TO [Concomitant]
     Active Substance: UNSPECIFIED INGREDIENT
     Route: 048
  2. PROMAC (POLAPREZINC) [Concomitant]
     Active Substance: POLAPREZINC
     Route: 048
  3. DOXIL [Suspect]
     Active Substance: DOXORUBICIN HYDROCHLORIDE
     Indication: OVARIAN CANCER RECURRENT
     Route: 041
     Dates: start: 20130822
  4. JU-KAMA [Concomitant]
     Active Substance: MAGNESIUM OXIDE
     Route: 048
  5. AZUNOL [Concomitant]
     Active Substance: SODIUM GUALENATE
     Route: 049
  6. MECOBALAMIN [Concomitant]
     Active Substance: METHYLCOBALAMIN
     Route: 048
  7. ALLOID G [Concomitant]
     Active Substance: SODIUM ALGINATE
     Route: 048
  8. GOSHAJINKIGAN [Concomitant]
     Active Substance: HERBALS
     Route: 048
  9. BIFIDOBACTERIUM [Concomitant]
     Active Substance: BIFIDOBACTERIUM LONGUM
     Route: 048
  10. DOXIL [Suspect]
     Active Substance: DOXORUBICIN HYDROCHLORIDE
     Indication: OVARIAN CANCER RECURRENT
     Route: 041
     Dates: start: 20130725, end: 20130725
  11. HEPARINOID [Concomitant]
     Active Substance: CHONDROITIN SULFATE (BOVINE)
     Route: 061
  12. ADEROXAL [Concomitant]
     Active Substance: PYRIDOXAL PHOSPHATE
     Route: 048

REACTIONS (1)
  - Interstitial lung disease [Recovered/Resolved]

NARRATIVE: CASE EVENT DATE: 20130913
